FAERS Safety Report 8935790 (Version 2)
Quarter: 2012Q4

REPORT INFORMATION
  Report Type: 
  Country: CA (occurrence: CA)
  Receive Date: 20121130
  Receipt Date: 20121220
  Transmission Date: 20130627
  Serious: Yes (Hospitalization)
  Sender: FDA-Public Use
  Company Number: CA-ELI_LILLY_AND_COMPANY-CA201210006961

PATIENT
  Age: 53 Year
  Sex: Male

DRUGS (14)
  1. FORTEO [Suspect]
     Indication: OSTEOPOROSIS
     Dosage: 20 ug, qd
     Route: 058
     Dates: start: 20110616, end: 20121110
  2. FORTEO [Suspect]
     Dosage: 20 ug, qd
     Route: 058
  3. OXYCODONE [Concomitant]
  4. NADOLOL [Concomitant]
     Dosage: 80 mg, UNK
  5. LORAZEPAM [Concomitant]
     Dosage: 1 mg, UNK
  6. QUETIAPINE [Concomitant]
  7. RABEPRAZOLE [Concomitant]
  8. VOLTAREN                           /00372301/ [Concomitant]
  9. VITAMIN D NOS [Concomitant]
  10. CALCIUM [Concomitant]
  11. ZINC [Concomitant]
  12. AMITRIPTYLINE                      /00002202/ [Concomitant]
     Dosage: 20 mg, UNK
  13. DILAUDID [Concomitant]
     Dosage: 4 mg, UNK
  14. RISPERIDONE [Concomitant]
     Dosage: 0.25 mg, UNK

REACTIONS (7)
  - Anxiety [Not Recovered/Not Resolved]
  - Depression [Not Recovered/Not Resolved]
  - Abnormal behaviour [Not Recovered/Not Resolved]
  - Fear of needles [Not Recovered/Not Resolved]
  - Drug dose omission [Not Recovered/Not Resolved]
  - Intentional drug misuse [Unknown]
  - Emotional disorder [Not Recovered/Not Resolved]
